FAERS Safety Report 7755709-9 (Version None)
Quarter: 2011Q3

REPORT INFORMATION
  Report Type: 
  Country: None (occurrence: None)
  Receive Date: 20110916
  Receipt Date: 20110906
  Transmission Date: 20111222
  Serious: Yes (Other)
  Sender: FDA-Public Use
  Company Number: PHHY2011CZ79839

PATIENT

DRUGS (1)
  1. METOPROLOL TARTRATE [Suspect]
     Dosage: 100 MG, QD
     Route: 064

REACTIONS (3)
  - MATERNAL EXPOSURE DURING PREGNANCY [None]
  - PREMATURE BABY [None]
  - EXPOSURE DURING BREAST FEEDING [None]
